FAERS Safety Report 6693026-9 (Version None)
Quarter: 2010Q2

REPORT INFORMATION
  Report Type: 
  Country: None (occurrence: None)
  Receive Date: 20100422
  Receipt Date: 20100409
  Transmission Date: 20101027
  Serious: Yes (Other)
  Sender: FDA-Public Use
  Company Number: NL-MYLANLABS-2010S1006245

PATIENT
  Age: 83 Year
  Sex: Female

DRUGS (3)
  1. GLIMEPIRIDE [Suspect]
     Indication: DIABETES MELLITUS
     Dates: start: 20100209, end: 20100223
  2. GLICLAZIDE 80 MG TABLETS [Suspect]
     Indication: DIABETES MELLITUS
     Dates: start: 20090928, end: 20100209
  3. GLICLAZIDE [Suspect]
     Indication: DIABETES MELLITUS
     Dates: start: 20100223

REACTIONS (6)
  - BONE PAIN [None]
  - CHILLS [None]
  - HEADACHE [None]
  - NAUSEA [None]
  - OEDEMA PERIPHERAL [None]
  - STOMATITIS [None]
